FAERS Safety Report 5781573-3 (Version None)
Quarter: 2008Q2

REPORT INFORMATION
  Report Type: 
  Country: None (occurrence: None)
  Receive Date: 20080623
  Receipt Date: 20080402
  Transmission Date: 20081010
  Serious: No
  Sender: FDA-Public Use
  Company Number: US-ASTRAZENECA-2006UW03782

PATIENT
  Age: 56 Year
  Sex: Female

DRUGS (9)
  1. RHINOCORT [Suspect]
     Indication: SEASONAL ALLERGY
     Route: 045
  2. RHINOCORT [Suspect]
     Indication: POSTNASAL DRIP
     Route: 045
  3. RHINOCORT [Suspect]
     Route: 045
     Dates: start: 20080111, end: 20080209
  4. RHINOCORT [Suspect]
     Route: 045
     Dates: start: 20080111, end: 20080209
  5. RHINOCORT [Suspect]
     Dosage: 2 SPRAYS IN EACH NOSTRIL
     Route: 045
     Dates: start: 20080303
  6. RHINOCORT [Suspect]
     Dosage: 2 SPRAYS IN EACH NOSTRIL
     Route: 045
     Dates: start: 20080303
  7. SYNTHROID [Concomitant]
  8. AMATRIPTALINE [Concomitant]
  9. PREVACID [Concomitant]

REACTIONS (6)
  - ABDOMINAL PAIN [None]
  - DIARRHOEA [None]
  - DRUG INEFFECTIVE [None]
  - DRY MOUTH [None]
  - DRY THROAT [None]
  - RHINORRHOEA [None]
